FAERS Safety Report 9527279 (Version 7)
Quarter: 2014Q2

REPORT INFORMATION
  Report Type: Spontaneous
  Country: US (occurrence: US)
  Receive Date: 20130917
  Receipt Date: 20140418
  Transmission Date: 20141212
  Serious: Yes (Death, Hospitalization)
  Sender: FDA-Public Use
  Company Number: US-BIOGENIDEC-2013BI086400

PATIENT
  Age: 66 Year
  Sex: Female

DRUGS (9)
  1. TYSABRI [Suspect]
     Indication: MULTIPLE SCLEROSIS
     Route: 042
     Dates: start: 20080121, end: 20081219
  2. TYSABRI [Suspect]
     Indication: MULTIPLE SCLEROSIS
     Route: 042
     Dates: start: 20130705, end: 20130830
  3. AMPYRA [Concomitant]
  4. ASPRIN [Concomitant]
  5. PROZAC [Concomitant]
  6. LYRICA [Concomitant]
  7. CARDURA [Concomitant]
  8. AMBIEN [Concomitant]
  9. PRAVASTATIN [Concomitant]

REACTIONS (6)
  - Fall [Recovered/Resolved]
  - Coagulopathy [Unknown]
  - Cerebrovascular accident [Not Recovered/Not Resolved]
  - Multiple sclerosis [Not Recovered/Not Resolved]
  - Asthenia [Not Recovered/Not Resolved]
  - Death [Fatal]
